FAERS Safety Report 10060553 (Version 1)
Quarter: 2014Q2

REPORT INFORMATION
  Report Type: Spontaneous
  Country: KR (occurrence: KR)
  Receive Date: 20140404
  Receipt Date: 20140404
  Transmission Date: 20141212
  Serious: Yes (Hospitalization)
  Sender: FDA-Public Use
  Company Number: KR-009507513-1403KOR012108

PATIENT
  Age: 48 Year
  Sex: Female
  Weight: 62.1 kg

DRUGS (2)
  1. BRIDION [Suspect]
     Indication: NEUROMUSCULAR BLOCKADE REVERSAL
     Dosage: 2MG/KG (124.20 MG ONCE)
     Route: 042
     Dates: start: 20140122
  2. ROCURONIUM BROMIDE [Suspect]
     Indication: MAINTENANCE OF ANAESTHESIA
     Dosage: 20 ML, FREQUENCY ^4^
     Route: 042
     Dates: start: 20140122

REACTIONS (1)
  - Infection [Recovered/Resolved]
